FAERS Safety Report 6993047-2 (Version None)
Quarter: 2010Q3

REPORT INFORMATION
  Report Type: 
  Country: None (occurrence: None)
  Receive Date: 20100917
  Receipt Date: 20100419
  Transmission Date: 20110219
  Serious: No
  Sender: FDA-Public Use
  Company Number: US-ASTRAZENECA-2010SE17306

PATIENT
  Sex: Female

DRUGS (2)
  1. SEROQUEL XR [Suspect]
     Indication: BIPOLAR DISORDER
     Dosage: 200 MG IN AM AND 400 MG IN PM
     Route: 048
     Dates: start: 20091001, end: 20100301
  2. SEROQUEL XR [Suspect]
     Indication: SCHIZOPHRENIA
     Dosage: 200 MG IN AM AND 400 MG IN PM
     Route: 048
     Dates: start: 20091001, end: 20100301

REACTIONS (3)
  - AMNESIA [None]
  - INSOMNIA [None]
  - MUSCULOSKELETAL STIFFNESS [None]
